FAERS Safety Report 24355609 (Version 1)
Quarter: 2024Q3

REPORT INFORMATION
  Report Type: Other
  Country: ES (occurrence: ES)
  Receive Date: 20240924
  Receipt Date: 20240924
  Transmission Date: 20241017
  Serious: Yes (Hospitalization, Other)
  Sender: BIONPHARMA
  Company Number: ES-Bion-013884

PATIENT
  Age: 53 Year
  Sex: Male

DRUGS (9)
  1. VALPROIC ACID [Suspect]
     Active Substance: VALPROIC ACID
     Indication: Bipolar disorder
     Dosage: 15 MG/KG/DAY
  2. METRONIDAZOLE [Concomitant]
     Active Substance: METRONIDAZOLE
     Indication: Diverticulitis
     Dosage: PER 12H
  3. CIPROFLOXACIN [Concomitant]
     Active Substance: CIPROFLOXACIN
     Indication: Diverticulitis
  4. LORMETAZEPAM [Concomitant]
     Active Substance: LORMETAZEPAM
     Indication: Diverticulitis
  5. DESVENLAFAXINE [Concomitant]
     Active Substance: DESVENLAFAXINE
     Indication: Bipolar disorder
  6. ARIPIPRAZOLE [Concomitant]
     Active Substance: ARIPIPRAZOLE
     Indication: Bipolar disorder
  7. OLANZAPINE [Concomitant]
     Active Substance: OLANZAPINE
     Indication: Bipolar disorder
  8. LITHIUM [Concomitant]
     Active Substance: LITHIUM
     Indication: Bipolar disorder
  9. DISULFIRAM [Concomitant]
     Active Substance: DISULFIRAM
     Indication: Alcoholism

REACTIONS (4)
  - Treatment noncompliance [Unknown]
  - Generalised tonic-clonic seizure [Recovered/Resolved]
  - Toxic encephalopathy [Recovered/Resolved]
  - Confusional state [Recovered/Resolved]
